FAERS Safety Report 10031852 (Version 1)
Quarter: 2014Q1

REPORT INFORMATION
  Report Type: Spontaneous
  Country: AE (occurrence: AE)
  Receive Date: 20140324
  Receipt Date: 20140324
  Transmission Date: 20141002
  Serious: Yes (Disabling)
  Sender: FDA-Public Use
  Company Number: AE-SA-2014SA036679

PATIENT
  Age: 65 Year
  Sex: Male

DRUGS (3)
  1. TAVANIC [Suspect]
     Indication: SINUSITIS
     Route: 048
     Dates: start: 20140318
  2. TAVANIC [Suspect]
     Indication: BRONCHITIS
     Route: 048
     Dates: start: 20140318
  3. TELFAST [Suspect]
     Indication: PRODUCT USED FOR UNKNOWN INDICATION
     Route: 048
     Dates: start: 20140318

REACTIONS (1)
  - Pain in extremity [Recovering/Resolving]
